FAERS Safety Report 13883341 (Version 1)
Quarter: 2017Q3

REPORT INFORMATION
  Report Type: Spontaneous
  Country: US (occurrence: US)
  Receive Date: 20170818
  Receipt Date: 20170818
  Transmission Date: 20171127
  Serious: No
  Sender: FDA-Public Use
  Company Number: US-NEOS THERAPEUTICS, LP-2017NEO00054

PATIENT
  Sex: Male

DRUGS (4)
  1. KLONOPIN [Suspect]
     Active Substance: CLONAZEPAM
     Dosage: 0.5 MG, UP TO 3X/DAY
     Dates: end: 20170607
  2. ADZENYS XR-ODT [Suspect]
     Active Substance: AMPHETAMINE
     Indication: ANXIETY
     Dosage: .5 TABLETS, 2X/DAY
     Dates: start: 20170608
  3. KLONOPIN [Suspect]
     Active Substance: CLONAZEPAM
     Dosage: 1 MG, UP TO 3X/DAY
     Dates: start: 20170607
  4. ZOFRAN [Suspect]
     Active Substance: ONDANSETRON HYDROCHLORIDE
     Dosage: UNK
     Dates: start: 201706

REACTIONS (6)
  - Fatigue [Unknown]
  - Off label use [Unknown]
  - Feeling abnormal [Not Recovered/Not Resolved]
  - Dizziness [Unknown]
  - Dysuria [Unknown]
  - Urinary tract discomfort [Unknown]

NARRATIVE: CASE EVENT DATE: 20170608
